FAERS Safety Report 15787966 (Version 1)
Quarter: 2019Q1

REPORT INFORMATION
  Report Type: Report from Study
  Country: None (occurrence: DE)
  Receive Date: 20190104
  Receipt Date: 20190104
  Transmission Date: 20190417
  Serious: Yes (Other)
  Sender: FDA-Public Use
  Company Number: DE-ABBVIE-19K-062-2609986-00

PATIENT
  Age: 54 Year
  Sex: Male

DRUGS (1)
  1. HUMIRA [Suspect]
     Active Substance: ADALIMUMAB
     Indication: ANKYLOSING SPONDYLITIS
     Route: 058
     Dates: start: 2012

REACTIONS (3)
  - Weight decreased [Recovered/Resolved]
  - Weight increased [Not Recovered/Not Resolved]
  - Rehabilitation therapy [Recovered/Resolved]

NARRATIVE: CASE EVENT DATE: 201805
